FAERS Safety Report 6837006-9 (Version None)
Quarter: 2010Q3

REPORT INFORMATION
  Report Type: 
  Country: None (occurrence: None)
  Receive Date: 20100713
  Receipt Date: 20070427
  Transmission Date: 20110219
  Serious: No
  Sender: FDA-Public Use
  Company Number: US-PFIZER INC-2007035060

PATIENT
  Sex: Male
  Weight: 95.454 kg

DRUGS (4)
  1. CHANTIX [Suspect]
     Indication: SMOKING CESSATION THERAPY
     Dates: start: 20070401, end: 20070401
  2. LIPITOR [Concomitant]
  3. LOTREL [Concomitant]
  4. DOXAZOSIN [Concomitant]

REACTIONS (2)
  - CHROMATURIA [None]
  - URINARY TRACT INFECTION [None]
